FAERS Safety Report 11983887 (Version 1)
Quarter: 2016Q1

REPORT INFORMATION
  Report Type: Spontaneous
  Country: US (occurrence: US)
  Receive Date: 20160201
  Receipt Date: 20160201
  Transmission Date: 20160526
  Serious: Yes (Other)
  Sender: FDA-Public Use
  Company Number: US-BANPHARM-20164614

PATIENT
  Age: 67 Year
  Sex: Male

DRUGS (2)
  1. NAPROXEN UNKNOWN PRODUCT [Suspect]
     Active Substance: NAPROXEN
     Dosage: PRN,
  2. ASPIRIN 81MG [Suspect]
     Active Substance: ASPIRIN
     Dosage: 1 DF, QD,

REACTIONS (2)
  - Peptic ulcer [Recovering/Resolving]
  - Gastrointestinal fistula [Recovering/Resolving]
